FAERS Safety Report 8765715 (Version 1)
Quarter: 2012Q4

REPORT INFORMATION
  Report Type: 
  Country: DE (occurrence: DE)
  Receive Date: 20120903
  Receipt Date: 20120903
  Transmission Date: 20130627
  Serious: Yes (Other)
  Sender: FDA-Public Use
  Company Number: PHHY2012DE074792

PATIENT

DRUGS (7)
  1. NEORAL [Suspect]
     Indication: RENAL TRANSPLANT
     Dosage: 400 mg/m2, per day
  2. NEORAL [Suspect]
     Dosage: 200 mg/m2, per day
  3. SIMULECT [Suspect]
     Indication: RENAL TRANSPLANT
  4. EVEROLIMUS [Suspect]
     Indication: RENAL TRANSPLANT
     Dosage: 0.8 mg/m2, BID
  5. PREDNISOLONE [Suspect]
     Indication: RENAL TRANSPLANT
     Dosage: 300 mg/m2, UNK
  6. PREDNISOLONE [Suspect]
     Dosage: 60 mg/m2, per day
  7. PREDNISOLONE [Suspect]
     Dosage: 5 mg/m2, per day

REACTIONS (2)
  - Kidney fibrosis [Unknown]
  - Renal tubular atrophy [Unknown]
